FAERS Safety Report 6040633-2 (Version None)
Quarter: 2009Q1

REPORT INFORMATION
  Report Type: 
  Country: None (occurrence: None)
  Receive Date: 20090116
  Receipt Date: 20080423
  Transmission Date: 20090719
  Serious: No
  Sender: FDA-Public Use
  Company Number: US-BRISTOL-MYERS SQUIBB COMPANY-14162069

PATIENT

DRUGS (4)
  1. ABILIFY [Suspect]
  2. TRILEPTAL [Suspect]
  3. SEROQUEL [Suspect]
  4. STRATTERA [Concomitant]

REACTIONS (2)
  - NEUTROPHIL COUNT DECREASED [None]
  - WHITE BLOOD CELL COUNT DECREASED [None]
